FAERS Safety Report 8058908-4 (Version None)
Quarter: 2012Q1

REPORT INFORMATION
  Report Type: 
  Country: None (occurrence: None)
  Receive Date: 20120120
  Receipt Date: 20111014
  Transmission Date: 20120608
  Serious: Yes (Life-Threatening, Other)
  Sender: FDA-Public Use
  Company Number: US-BRISTOL-MYERS SQUIBB COMPANY-16121477

PATIENT
  Age: 74 Year
  Sex: Female

DRUGS (8)
  1. CALCIUM + VITAMIN D [Concomitant]
  2. FISH OIL [Concomitant]
  3. NEXIUM [Concomitant]
     Dosage: TABS
  4. ONDANSETRON HCL [Concomitant]
  5. YERVOY [Suspect]
     Indication: MELANOMA RECURRENT
     Dosage: DOSE:3MG/KG=221MG. 21SEP11 LOT NO:917821 EXP DT: JAN2014
     Route: 042
     Dates: start: 20110829
  6. MESALAMINE [Concomitant]
     Dosage: EC TAB
  7. MULTI-VITAMIN [Concomitant]
  8. PREDNISONE [Concomitant]
     Route: 048
     Dates: start: 20110928

REACTIONS (1)
  - HEPATOTOXICITY [None]
